FAERS Safety Report 25498140 (Version 1)
Quarter: 2025Q3

REPORT INFORMATION
  Report Type: Spontaneous
  Country: US (occurrence: US)
  Receive Date: 20250701
  Receipt Date: 20250701
  Transmission Date: 20251020
  Serious: No
  Sender: CHIESI
  Company Number: US-CHIESI-2025CHF02812

PATIENT
  Age: 31 Year
  Sex: Male
  Weight: 47.599 kg

DRUGS (2)
  1. FILSUVEZ [Suspect]
     Active Substance: BIRCH TRITERPENES
     Indication: Epidermolysis bullosa
     Route: 061
     Dates: start: 20250114, end: 202504
  2. FILSUVEZ [Suspect]
     Active Substance: BIRCH TRITERPENES
     Route: 061
     Dates: start: 202505

REACTIONS (4)
  - Scab [Recovering/Resolving]
  - Wound complication [Recovering/Resolving]
  - Wound secretion [Recovering/Resolving]
  - Product administration interrupted [Recovered/Resolved]

NARRATIVE: CASE EVENT DATE: 20250401
